FAERS Safety Report 23264976 (Version 1)
Quarter: 2023Q4

REPORT INFORMATION
  Report Type: Spontaneous
  Country: FR (occurrence: FR)
  Receive Date: 20231206
  Receipt Date: 20231206
  Transmission Date: 20240110
  Serious: Yes (Other)
  Sender: FDA-Public Use
  Company Number: None

PATIENT
  Age: 60 Year
  Sex: Female

DRUGS (3)
  1. OCREVUS [Suspect]
     Active Substance: OCRELIZUMAB
     Indication: Relapsing-remitting multiple sclerosis
     Route: 065
     Dates: start: 20200915
  2. TRILEPTAL [Concomitant]
     Active Substance: OXCARBAZEPINE
  3. CHOLECALCIFEROL [Concomitant]
     Active Substance: CHOLECALCIFEROL

REACTIONS (1)
  - Basal cell carcinoma [Recovered/Resolved]

NARRATIVE: CASE EVENT DATE: 20220315
